FAERS Safety Report 22001917 (Version 1)
Quarter: 2023Q1

REPORT INFORMATION
  Report Type: Spontaneous
  Country: US (occurrence: None)
  Receive Date: 20230216
  Receipt Date: 20230216
  Transmission Date: 20230418
  Serious: No
  Sender: FDA-Public Use
  Company Number: US-Merck Healthcare KGaA-9383765

PATIENT
  Sex: Female

DRUGS (1)
  1. MAVENCLAD [Suspect]
     Active Substance: CLADRIBINE
     Indication: Multiple sclerosis
     Dosage: THERAPY
     Route: 048
     Dates: start: 20220221

REACTIONS (5)
  - Eczema [Recovering/Resolving]
  - Paraesthesia [Recovering/Resolving]
  - Feeling hot [Recovering/Resolving]
  - Pain [Recovering/Resolving]
  - Fatigue [Recovering/Resolving]
